FAERS Safety Report 7653631-X (Version None)
Quarter: 2011Q3

REPORT INFORMATION
  Report Type: 
  Country: None (occurrence: None)
  Receive Date: 20110803
  Receipt Date: 20110803
  Transmission Date: 20111222
  Serious: Yes (Other)
  Sender: FDA-Public Use
  Company Number: None

PATIENT
  Age: 72 Year
  Sex: Male
  Weight: 80 kg

DRUGS (3)
  1. INTEGRILIN [Concomitant]
  2. HEPARIN [Concomitant]
  3. PRASUGREL [Suspect]
     Indication: CATHETERISATION CARDIAC
     Dosage: 60 MG
     Route: 048
     Dates: start: 20110627, end: 20110627

REACTIONS (1)
  - PLATELET COUNT DECREASED [None]
